FAERS Safety Report 6764733-4 (Version None)
Quarter: 2010Q2

REPORT INFORMATION
  Report Type: 
  Country: None (occurrence: None)
  Receive Date: 20100610
  Receipt Date: 20100225
  Transmission Date: 20101027
  Serious: Yes (Other)
  Sender: FDA-Public Use
  Company Number: BR-PFIZER INC-2010002134

PATIENT
  Age: 44 Year
  Sex: Male
  Weight: 78 kg

DRUGS (8)
  1. CHAMPIX [Suspect]
     Indication: SMOKING CESSATION THERAPY
     Dosage: 1 MG, EVERY 12 HOURS
     Route: 048
     Dates: start: 20091123, end: 20100223
  2. CHAMPIX [Suspect]
     Indication: TOBACCO ABUSE
  3. PAROXETINE [Suspect]
     Indication: ANXIETY
     Dosage: UNK
  4. ENALAPRIL [Concomitant]
     Dosage: UNK
  5. ATENOLOL [Concomitant]
     Dosage: UNK
  6. SIMVASTATIN [Concomitant]
     Dosage: UNK
  7. CLOPIDOGREL [Concomitant]
     Dosage: UNK
  8. FRONTAL [Concomitant]
     Dosage: UNK

REACTIONS (2)
  - DRUG INTERACTION [None]
  - PANIC REACTION [None]
